FAERS Safety Report 13171295 (Version 1)
Quarter: 2017Q1

REPORT INFORMATION
  Report Type: Other
  Country: US (occurrence: US)
  Receive Date: 20170201
  Receipt Date: 20170201
  Transmission Date: 20170428
  Serious: Yes (Other)
  Sender: FDA-Public Use
  Company Number: US-LUPIN PHARMACEUTICALS INC.-2017-00407

PATIENT
  Age: 54 Year
  Sex: Male

DRUGS (3)
  1. RISPERIDONE. [Suspect]
     Active Substance: RISPERIDONE
     Indication: SCHIZOAFFECTIVE DISORDER DEPRESSIVE TYPE
     Route: 048
  2. LORAZEPAM. [Suspect]
     Active Substance: LORAZEPAM
     Indication: SCHIZOAFFECTIVE DISORDER DEPRESSIVE TYPE
     Route: 048
  3. LORAZEPAM. [Suspect]
     Active Substance: LORAZEPAM
     Route: 048

REACTIONS (4)
  - Failure to thrive [Recovering/Resolving]
  - Drug withdrawal syndrome [Recovering/Resolving]
  - Condition aggravated [Recovering/Resolving]
  - Catatonia [Recovering/Resolving]
